FAERS Safety Report 6012316-6 (Version None)
Quarter: 2008Q4

REPORT INFORMATION
  Report Type: 
  Country: None (occurrence: None)
  Receive Date: 20081218
  Receipt Date: 20081117
  Transmission Date: 20090506
  Serious: No
  Sender: FDA-Public Use
  Company Number: US-ASTRAZENECA-2008UW25752

PATIENT
  Age: 21716 Day
  Sex: Female
  Weight: 63 kg

DRUGS (7)
  1. SYMBICORT [Suspect]
     Indication: ASTHMA
     Dosage: 80 MCG/4.5, 1 PUFF TWICE DAILY
     Route: 055
     Dates: start: 20081105
  2. IBUPROFEN [Suspect]
     Route: 065
     Dates: start: 20081116
  3. CALCIUM [Concomitant]
  4. ALBUTEROL [Concomitant]
     Indication: ASTHMA
  5. CROMOLYN SODIUM [Concomitant]
     Indication: ASTHMA
  6. SINGULAIR [Concomitant]
     Indication: ASTHMA
  7. VITAMIN D [Concomitant]

REACTIONS (2)
  - ASTHMA [None]
  - DYSPNOEA [None]
